FAERS Safety Report 9459035 (Version 2)
Quarter: 2014Q1

REPORT INFORMATION
  Report Type: Spontaneous
  Country: US (occurrence: US)
  Receive Date: 20130814
  Receipt Date: 20140121
  Transmission Date: 20141002
  Serious: Yes (Hospitalization)
  Sender: FDA-Public Use
  Company Number: US-B.I. PHARMACEUTICALS,INC./RIDGEFIELD-2013-BI-24798BP

PATIENT
  Age: 45 Year
  Sex: Male
  Weight: 90.72 kg

DRUGS (13)
  1. PRADAXA [Suspect]
     Dosage: 300 MG
     Route: 048
     Dates: start: 20110915, end: 20121019
  2. ALLOPURINOL [Concomitant]
     Dosage: 300 MG
     Route: 048
  3. SPIRONOLACTONE [Concomitant]
     Dosage: 150 MG
     Route: 048
  4. LETAIRIS [Concomitant]
     Dosage: 5 MG
     Route: 048
  5. VIAGRA [Concomitant]
     Route: 048
  6. NORCO [Concomitant]
  7. ADVAIR [Concomitant]
  8. GABAPENTIN [Concomitant]
     Dosage: 200 MG
     Route: 048
  9. METOLAZONE [Concomitant]
     Dosage: 5 MG
     Route: 048
  10. ZYVOX [Concomitant]
     Dosage: 1200 MG
     Route: 048
  11. KCL [Concomitant]
     Dosage: 10 MEQ
  12. VELETRI [Concomitant]
  13. LASIX [Concomitant]
     Dosage: 80 MG
     Route: 048

REACTIONS (4)
  - Gastrointestinal haemorrhage [Unknown]
  - Haemorrhagic anaemia [Unknown]
  - Coagulopathy [Unknown]
  - Renal failure acute [Unknown]
